FAERS Safety Report 9301248 (Version 1)
Quarter: 2013Q2

REPORT INFORMATION
  Report Type: Spontaneous
  Country: US (occurrence: None)
  Receive Date: 20130520
  Receipt Date: 20130520
  Transmission Date: 20140414
  Serious: Yes (Hospitalization)
  Sender: FDA-Public Use
  Company Number: None

PATIENT
  Age: 65 Year
  Sex: Male

DRUGS (1)
  1. AMLODIPINE/BENAZEPRIL [Suspect]
     Indication: HYPERTENSION
     Dates: start: 20130101, end: 20130403

REACTIONS (2)
  - Lip oedema [None]
  - Angioedema [None]
